FAERS Safety Report 14846743 (Version 7)
Quarter: 2020Q1

REPORT INFORMATION
  Report Type: Spontaneous
  Country: PT (occurrence: PT)
  Receive Date: 20180504
  Receipt Date: 20200108
  Transmission Date: 20200409
  Serious: Yes (Hospitalization, Other)
  Sender: FDA-Public Use
  Company Number: PT-009507513-1804PRT009218

PATIENT
  Age: 36 Year
  Sex: Male

DRUGS (7)
  1. AMANTADINE. [Concomitant]
     Active Substance: AMANTADINE HYDROCHLORIDE
     Indication: PARKINSON^S DISEASE
     Dosage: 100 MILLIGRAM, QD
  2. SINEMET [Suspect]
     Active Substance: CARBIDOPA\LEVODOPA
     Indication: PARKINSON^S DISEASE
     Dosage: LEVODOPA+ CARBIDOPA 100/25 MG, BID
     Route: 048
  3. SINEMET [Suspect]
     Active Substance: CARBIDOPA\LEVODOPA
     Dosage: CONTINUOUS INCREASES IN THE L-DOPA DOSAGE
     Route: 048
  4. ROPINIROLE. [Concomitant]
     Active Substance: ROPINIROLE
     Indication: DOPAMINERGIC DRUG THERAPY
     Dosage: 160 MG OF LED AGONISTS
  5. AMANTADINE. [Concomitant]
     Active Substance: AMANTADINE HYDROCHLORIDE
     Indication: DOPAMINERGIC DRUG THERAPY
     Dosage: 160 MG OF LED AGONISTS
  6. SINEMET [Suspect]
     Active Substance: CARBIDOPA\LEVODOPA
     Dosage: LEVODOPA+ CARBIDOPA 100/25 MG, 5 TIMES PER DAY
  7. ROPINIROLE. [Concomitant]
     Active Substance: ROPINIROLE
     Indication: PARKINSON^S DISEASE
     Dosage: 6 MILLIGRAM, QD; EXTENDED RELEASE

REACTIONS (6)
  - Hallucination, visual [Unknown]
  - Hypocalcaemia [Recovered/Resolved]
  - Akathisia [Unknown]
  - Extra dose administered [Unknown]
  - Dyskinesia [Recovered/Resolved]
  - Aggression [Unknown]
